FAERS Safety Report 7282345-3 (Version None)
Quarter: 2011Q1

REPORT INFORMATION
  Report Type: 
  Country: None (occurrence: None)
  Receive Date: 20110209
  Receipt Date: 20110128
  Transmission Date: 20110831
  Serious: Yes (Hospitalization)
  Sender: FDA-Public Use
  Company Number: US-ELI_LILLY_AND_COMPANY-US201101007514

PATIENT
  Sex: Male
  Weight: 107.94 kg

DRUGS (6)
  1. PRILOSEC [Concomitant]
     Indication: DYSPEPSIA
     Dosage: 20 MG, DAILY (1/D)
     Route: 048
  2. ASPIRIN [Concomitant]
     Indication: CARDIAC DISORDER
     Dosage: 1 D/F, DAILY (1/D)
     Route: 048
  3. BYETTA [Suspect]
     Indication: DIABETES MELLITUS
     Dosage: 10 MG, 2/D
     Route: 058
  4. HUMALOG [Concomitant]
     Dosage: SLIDING SCALE WITH MEALS
     Route: 058
  5. LANTUS [Concomitant]
     Indication: DIABETES MELLITUS
     Dosage: 95 U, 2/D
     Route: 058
  6. GLUCOPHAGE [Concomitant]
     Indication: DIABETES MELLITUS
     Dosage: 1000 MG, 2/D
     Route: 048

REACTIONS (3)
  - SINUS DISORDER [None]
  - SPEECH DISORDER [None]
  - TREMOR [None]
